FAERS Safety Report 17825714 (Version 1)
Quarter: 2020Q2

REPORT INFORMATION
  Report Type: Spontaneous
  Country: CA (occurrence: CA)
  Receive Date: 20200526
  Receipt Date: 20200526
  Transmission Date: 20200714
  Serious: Yes (Hospitalization)
  Sender: FDA-Public Use
  Company Number: CA-TEVA-2020-CA-1238825

PATIENT
  Age: 1 Year
  Sex: Female
  Weight: 10 kg

DRUGS (6)
  1. ETOPOSIDE. [Suspect]
     Active Substance: ETOPOSIDE
     Indication: NEUROBLASTOMA
     Dosage: 210 MILLIGRAM DAILY;
     Route: 042
  2. ETOPOSIDE. [Suspect]
     Active Substance: ETOPOSIDE
     Dosage: 210 MILLIGRAM DAILY;
     Route: 042
  3. ETOPOSIDE. [Suspect]
     Active Substance: ETOPOSIDE
     Dosage: 210 MILLIGRAM DAILY;
     Route: 042
  4. BACTRIM [Concomitant]
     Active Substance: SULFAMETHOXAZOLE\TRIMETHOPRIM
  5. COTRIMOXAZOLE [Concomitant]
     Active Substance: SULFAMETHOXAZOLE\TRIMETHOPRIM
  6. ETOPOSIDE. [Suspect]
     Active Substance: ETOPOSIDE
     Route: 042

REACTIONS (5)
  - Blood pressure decreased [Recovered/Resolved]
  - Lip swelling [Recovered/Resolved]
  - Product use in unapproved indication [Recovered/Resolved]
  - Cough [Recovered/Resolved]
  - Eye swelling [Recovered/Resolved]
